FAERS Safety Report 20519503 (Version 5)
Quarter: 2022Q3

REPORT INFORMATION
  Report Type: Spontaneous
  Country: JP (occurrence: JP)
  Receive Date: 20220225
  Receipt Date: 20220715
  Transmission Date: 20221026
  Serious: Yes (Death, Other)
  Sender: FDA-Public Use
  Company Number: JP-GSKJP-JP2022JPN033889AA

PATIENT

DRUGS (6)
  1. SOTROVIMAB [Suspect]
     Active Substance: SOTROVIMAB
     Indication: COVID-19
     Dosage: 500 MG/50 ML/30 MINUTES, QD
     Dates: start: 20220219, end: 20220219
  2. FUROSEMIDE [Concomitant]
     Active Substance: FUROSEMIDE
     Indication: Oedema
     Dosage: 20 MG, QD
     Route: 042
     Dates: start: 20211222, end: 20220219
  3. AMLODIPINE [Concomitant]
     Active Substance: AMLODIPINE BESYLATE
     Indication: Hypertension
     Dosage: 7.5 MG, QD, DOSING BY TUBE
     Dates: start: 20211222, end: 20220219
  4. CEFTRIAXONE SODIUM [Concomitant]
     Active Substance: CEFTRIAXONE SODIUM
     Indication: Pneumonia
     Dosage: 1 G, BID
     Route: 042
     Dates: start: 20220216, end: 20220219
  5. OXYGEN [Concomitant]
     Active Substance: OXYGEN
     Indication: Pneumonia
     Dosage: 3 LITERS/MINUTE
  6. OXYGEN [Concomitant]
     Active Substance: OXYGEN
     Indication: Pneumonia aspiration

REACTIONS (7)
  - Condition aggravated [Fatal]
  - Pneumonia aspiration [Fatal]
  - Pneumonia [Fatal]
  - Pyrexia [Fatal]
  - Drug ineffective [Unknown]
  - Product use issue [Unknown]
  - Off label use [Unknown]

NARRATIVE: CASE EVENT DATE: 20220219
